FAERS Safety Report 10710728 (Version 1)
Quarter: 2015Q1

REPORT INFORMATION
  Report Type: Spontaneous
  Country: US (occurrence: US)
  Receive Date: 20150114
  Receipt Date: 20150114
  Transmission Date: 20150721
  Serious: Yes (Death)
  Sender: FDA-Public Use
  Company Number: US-PFIZER INC-2015006604

PATIENT
  Age: 68 Year
  Sex: Male

DRUGS (2)
  1. NITROGLYCERIN. [Suspect]
     Active Substance: NITROGLYCERIN
     Route: 048
  2. RISPERIDONE. [Suspect]
     Active Substance: RISPERIDONE
     Route: 048

REACTIONS (3)
  - Cardiac arrest [Fatal]
  - Respiratory arrest [Fatal]
  - Injury [Fatal]

NARRATIVE: CASE EVENT DATE: 2013
